FAERS Safety Report 17216181 (Version 2)
Quarter: 2019Q4

REPORT INFORMATION
  Report Type: Spontaneous
  Country: US (occurrence: US)
  Receive Date: 20191230
  Receipt Date: 20191230
  Transmission Date: 20200122
  Serious: No
  Sender: FDA-Public Use
  Company Number: US-PFIZER INC-2019431148

PATIENT
  Age: 29 Year
  Sex: Female

DRUGS (1)
  1. SYNAREL [Suspect]
     Active Substance: NAFARELIN ACETATE
     Dosage: 0.2 MG, 2X/DAY (1 SPRAY INTRANASAL BID FOR 90 DAY)
     Route: 045

REACTIONS (2)
  - Pain [Unknown]
  - Off label use [Unknown]
